FAERS Safety Report 6370864-3 (Version None)
Quarter: 2009Q3

REPORT INFORMATION
  Report Type: 
  Country: None (occurrence: None)
  Receive Date: 20090923
  Receipt Date: 20070926
  Transmission Date: 20100115
  Serious: No
  Sender: FDA-Public Use
  Company Number: US-ASTRAZENECA-2006UW24425

PATIENT
  Age: 16758 Day
  Sex: Female
  Weight: 81.2 kg

DRUGS (19)
  1. SEROQUEL [Suspect]
     Indication: DEPRESSION
     Route: 048
     Dates: start: 20000101, end: 20010101
  2. SEROQUEL [Suspect]
     Indication: STRESS
     Route: 048
     Dates: start: 20000101, end: 20010101
  3. SEROQUEL [Suspect]
     Indication: BIPOLAR DISORDER
     Route: 048
     Dates: start: 20000101, end: 20010101
  4. SEROQUEL [Suspect]
     Route: 048
     Dates: start: 20021101, end: 20021201
  5. SEROQUEL [Suspect]
     Route: 048
     Dates: start: 20021101, end: 20021201
  6. SEROQUEL [Suspect]
     Route: 048
     Dates: start: 20021101, end: 20021201
  7. SEROQUEL [Suspect]
     Route: 048
     Dates: start: 20021126
  8. SEROQUEL [Suspect]
     Route: 048
     Dates: start: 20021126
  9. SEROQUEL [Suspect]
     Route: 048
     Dates: start: 20021126
  10. STARLIX [Concomitant]
  11. ZYPREXA [Concomitant]
     Dosage: 2.5 MG - 5 MG
  12. WELLBUTRIN [Concomitant]
     Route: 048
  13. SPIRIVA [Concomitant]
     Dosage: 1 PUFF DAILY
  14. ADVAIR DISKUS 100/50 [Concomitant]
     Dosage: 100-50 MCG TO 500-50 MCG
  15. COMBIVENT [Concomitant]
     Dosage: 1 PUFF TWICE DAILY
  16. SINGULAIR [Concomitant]
  17. BIAXIN [Concomitant]
  18. XANAX [Concomitant]
     Dosage: 0.25 MG- 1 MG
  19. TUSSIONEX [Concomitant]

REACTIONS (3)
  - CHRONIC OBSTRUCTIVE PULMONARY DISEASE [None]
  - DIABETES MELLITUS [None]
  - ILL-DEFINED DISORDER [None]
